FAERS Safety Report 6285927-0 (Version None)
Quarter: 2009Q3

REPORT INFORMATION
  Report Type: 
  Country: None (occurrence: None)
  Receive Date: 20090728
  Receipt Date: 20090223
  Transmission Date: 20100115
  Serious: No
  Sender: FDA-Public Use
  Company Number: A0770772A

PATIENT
  Sex: Male

DRUGS (1)
  1. TRIAMTERENE AND HYDROCHLOROTHIAZIDE [Suspect]
     Indication: DRUG USE FOR UNKNOWN INDICATION
     Route: 048

REACTIONS (4)
  - HEART RATE IRREGULAR [None]
  - HYPOTENSION [None]
  - PRODUCT QUALITY ISSUE [None]
  - VISION BLURRED [None]
